FAERS Safety Report 10213938 (Version 2)
Quarter: 2014Q2

REPORT INFORMATION
  Report Type: Spontaneous
  Country: JP (occurrence: None)
  Receive Date: 20140529
  Receipt Date: 20140603
  Transmission Date: 20141212
  Serious: Yes (Hospitalization, Disabling)
  Sender: FDA-Public Use
  Company Number: SP07859

PATIENT
  Age: 55 Year
  Sex: Male

DRUGS (1)
  1. MOVIPREP(SOLUTION) [Suspect]
     Indication: BOWEL PREPARATION
     Route: 048
     Dates: start: 20140404, end: 20140404

REACTIONS (3)
  - Intestinal obstruction [None]
  - Feeling abnormal [None]
  - Ileus [None]
